FAERS Safety Report 11291883 (Version 1)
Quarter: 2015Q3

REPORT INFORMATION
  Report Type: Spontaneous
  Country: GB (occurrence: GB)
  Receive Date: 20150722
  Receipt Date: 20150722
  Transmission Date: 20151125
  Serious: Yes (Hospitalization, Other)
  Sender: FDA-Public Use
  Company Number: GB-PFIZER INC-2015241092

PATIENT
  Age: 62 Year
  Sex: Female

DRUGS (1)
  1. DEPO-MEDRONE [Suspect]
     Active Substance: METHYLPREDNISOLONE
     Indication: NEURALGIA
     Dosage: 100 MG
     Dates: start: 20150527, end: 20150527

REACTIONS (4)
  - Hypertension [Recovering/Resolving]
  - Bradycardia [Recovering/Resolving]
  - Flushing [Recovering/Resolving]
  - Cushingoid [Recovering/Resolving]

NARRATIVE: CASE EVENT DATE: 20150527
